FAERS Safety Report 9199434 (Version 1)
Quarter: 2013Q1

REPORT INFORMATION
  Report Type: Spontaneous
  Country: NL (occurrence: NL)
  Receive Date: 20130329
  Receipt Date: 20130329
  Transmission Date: 20140127
  Serious: Yes (Hospitalization)
  Sender: FDA-Public Use
  Company Number: NL-AMGEN-NLDSP2013021848

PATIENT
  Sex: Female

DRUGS (2)
  1. ENBREL [Suspect]
     Indication: RHEUMATOID ARTHRITIS
     Dosage: 50 MG, WEEKLY
     Dates: start: 2010
  2. MTX                                /00113802/ [Concomitant]
     Dosage: UNK

REACTIONS (3)
  - Ovarian disorder [Recovering/Resolving]
  - Gastrointestinal disorder [Recovering/Resolving]
  - Bladder disorder [Recovering/Resolving]
